FAERS Safety Report 5242327-X (Version None)
Quarter: 2007Q1

REPORT INFORMATION
  Report Type: 
  Country: None (occurrence: None)
  Receive Date: 20070221
  Receipt Date: 20070213
  Transmission Date: 20070707
  Serious: Yes (Hospitalization)
  Sender: FDA-Public Use
  Company Number: HQWYE140222JAN07

PATIENT
  Age: 82 Year
  Sex: Male

DRUGS (7)
  1. AVLOCARDYL [Suspect]
     Dosage: DOSE AND FORM NOT SPECIFIED
     Route: 048
     Dates: start: 20061130
  2. PRAVASTATIN [Suspect]
     Indication: DYSLIPIDAEMIA
     Dosage: DOSE AND FORM NOT SPECIFIED
     Route: 048
     Dates: start: 20061130
  3. ZOLPIDEM TARTRATE [Suspect]
     Dosage: 10 MG, FREQUENCY NOT SPECIFIED
     Route: 048
     Dates: start: 20061204
  4. TRANXENE [Suspect]
     Dosage: DOSE AND FORM NOT SPECIFIED
     Route: 030
     Dates: start: 20061204
  5. DIAZEPAM [Suspect]
     Dosage: DOSE AND FORM NOT SPECIFIED
     Route: 048
     Dates: start: 20061204
  6. INIPOMP [Suspect]
     Dosage: 40 MG, FREQUENCY NOT SPECIFIED
     Route: 048
     Dates: start: 20061130
  7. RIVOTRIL [Suspect]
     Dosage: DOSE AND FORM NOT SPECIFIED
     Route: 048
     Dates: start: 20061204

REACTIONS (2)
  - HALLUCINATION [None]
  - SLEEP WALKING [None]
